FAERS Safety Report 25789587 (Version 3)
Quarter: 2025Q4

REPORT INFORMATION
  Report Type: Report from Study
  Country: ZA (occurrence: ZA)
  Receive Date: 20250911
  Receipt Date: 20251013
  Transmission Date: 20260117
  Serious: Yes (Hospitalization, Other)
  Sender: ROCHE
  Company Number: ZA-ROCHE-10000379307

PATIENT
  Sex: Female

DRUGS (1)
  1. OCREVUS [Suspect]
     Active Substance: OCRELIZUMAB
     Indication: Primary progressive multiple sclerosis
     Dosage: THEREAFTER 600MG EVERY AFTER 6 MONTHS
     Route: 042
     Dates: start: 20250310

REACTIONS (6)
  - Malaise [Unknown]
  - Influenza [Unknown]
  - Multiple sclerosis relapse [Unknown]
  - Magnetic resonance imaging head abnormal [Unknown]
  - Multiple sclerosis [Unknown]
  - Magnetic resonance imaging abnormal [Unknown]
